FAERS Safety Report 22657923 (Version 1)
Quarter: 2023Q2

REPORT INFORMATION
  Report Type: Spontaneous
  Country: US (occurrence: US)
  Receive Date: 20230630
  Receipt Date: 20230630
  Transmission Date: 20230722
  Serious: No
  Sender: FDA-Public Use
  Company Number: US-Accord-307593

PATIENT

DRUGS (1)
  1. CLONAZEPAM [Suspect]
     Active Substance: CLONAZEPAM
     Indication: Product used for unknown indication
     Dosage: DOSAGE: 5
     Route: 065

REACTIONS (4)
  - Feeling abnormal [Unknown]
  - Amnesia [Unknown]
  - Anxiety [Unknown]
  - Product substitution issue [Unknown]
